FAERS Safety Report 7915743-2 (Version None)
Quarter: 2011Q4

REPORT INFORMATION
  Report Type: 
  Country: None (occurrence: None)
  Receive Date: 20111115
  Receipt Date: 20111031
  Transmission Date: 20120403
  Serious: Yes (Hospitalization)
  Sender: FDA-Public Use
  Company Number: JP-WATSON-2011-18171

PATIENT
  Age: 75 Year
  Sex: Male

DRUGS (1)
  1. RAPAFLO [Suspect]
     Indication: DYSURIA
     Dosage: UNK
     Route: 048
     Dates: start: 20110825, end: 20111001

REACTIONS (1)
  - LIVER DISORDER [None]
